FAERS Safety Report 17594331 (Version 1)
Quarter: 2020Q1

REPORT INFORMATION
  Report Type: Report from Study
  Country: US (occurrence: US)
  Receive Date: 20200327
  Receipt Date: 20200327
  Transmission Date: 20200409
  Serious: Yes (Hospitalization)
  Sender: FDA-Public Use
  Company Number: US-TAIHO ONCOLOGY  INC-EU-2020-00610

PATIENT
  Age: 64 Year
  Sex: Male
  Weight: 90.8 kg

DRUGS (13)
  1. STEROID [Concomitant]
     Active Substance: UNSPECIFIED INGREDIENT
  2. LONSURF [Suspect]
     Active Substance: TIPIRACIL HYDROCHLORIDE\TRIFLURIDINE
     Indication: COLORECTAL CANCER METASTATIC
     Dosage: CYCLE 1
     Route: 048
     Dates: start: 20200206
  3. LONSURF [Suspect]
     Active Substance: TIPIRACIL HYDROCHLORIDE\TRIFLURIDINE
     Route: 048
     Dates: start: 20200309, end: 20200313
  4. DECADRON [Concomitant]
     Active Substance: DEXAMETHASONE
     Indication: NEOPLASM SWELLING
     Dosage: 1/2 TAB IN MORNING AND 1/2 TAB IN AFTERNOON
  5. ALLOPURINOL. [Concomitant]
     Active Substance: ALLOPURINOL
  6. KEPPRA [Concomitant]
     Active Substance: LEVETIRACETAM
     Indication: BRAIN NEOPLASM
  7. IRON SUPPLEMENT [Concomitant]
     Active Substance: IRON
  8. ZOFRAN [Concomitant]
     Active Substance: ONDANSETRON HYDROCHLORIDE
  9. LISINOPRIL. [Concomitant]
     Active Substance: LISINOPRIL
  10. SIMVASTATIN. [Concomitant]
     Active Substance: SIMVASTATIN
  11. GABAPENTIN. [Concomitant]
     Active Substance: GABAPENTIN
     Indication: NEUROPATHY PERIPHERAL
  12. MAGNESIUM [Concomitant]
     Active Substance: MAGNESIUM
  13. PROTEINEX [Concomitant]

REACTIONS (8)
  - Nausea [Recovered/Resolved]
  - Weight decreased [Unknown]
  - Faecaloma [Recovered/Resolved]
  - Fatigue [Not Recovered/Not Resolved]
  - Vomiting [Recovered/Resolved]
  - Muscle spasms [Recovered/Resolved]
  - Abdominal pain [Recovered/Resolved]
  - Diarrhoea [Not Recovered/Not Resolved]

NARRATIVE: CASE EVENT DATE: 20200215
